FAERS Safety Report 14717871 (Version 2)
Quarter: 2018Q3

REPORT INFORMATION
  Report Type: Report from Study
  Country: US (occurrence: US)
  Receive Date: 20180404
  Receipt Date: 20180925
  Transmission Date: 20181010
  Serious: No
  Sender: FDA-Public Use
  Company Number: US-SA-2018SA034426

PATIENT
  Age: 52 Year
  Sex: Male

DRUGS (1)
  1. DUPILUMAB [Suspect]
     Active Substance: DUPILUMAB
     Dosage: UNK
     Dates: start: 20171207, end: 201803

REACTIONS (10)
  - Dermatitis [Unknown]
  - Eye disorder [Unknown]
  - Weight increased [Not Recovered/Not Resolved]
  - Pruritus [Unknown]
  - Tarsal tunnel syndrome [Unknown]
  - Lacrimation increased [Not Recovered/Not Resolved]
  - Scratch [Unknown]
  - Hypoaesthesia [Unknown]
  - Conjunctivitis [Not Recovered/Not Resolved]
  - Pain [Unknown]

NARRATIVE: CASE EVENT DATE: 201801
